FAERS Safety Report 25010529 (Version 2)
Quarter: 2025Q2

REPORT INFORMATION
  Report Type: Spontaneous
  Country: US (occurrence: US)
  Receive Date: 20250225
  Receipt Date: 20250421
  Transmission Date: 20250717
  Serious: No
  Sender: INCYTE
  Company Number: US-EVENT-001680

PATIENT
  Age: 51 Year

DRUGS (2)
  1. OPZELURA [Suspect]
     Active Substance: RUXOLITINIB PHOSPHATE
     Indication: Dermatitis atopic
     Dosage: 1.5 PERCENT, BID APPLY TO AFFECTED AREA(S) OF BODY TWICE DAILY FOR ATOPIC DERMATITIS AS DIRECTED
  2. OPZELURA [Suspect]
     Active Substance: RUXOLITINIB PHOSPHATE

REACTIONS (3)
  - Dermatitis atopic [Unknown]
  - Urinary tract infection [Unknown]
  - Off label use [Unknown]
